FAERS Safety Report 21310309 (Version 3)
Quarter: 2022Q4

REPORT INFORMATION
  Report Type: Spontaneous
  Country: ES (occurrence: ES)
  Receive Date: 20220909
  Receipt Date: 20221026
  Transmission Date: 20230112
  Serious: Yes (Death, Other)
  Sender: FDA-Public Use
  Company Number: ES-ASTPRD-AER-2022-018240

PATIENT
  Age: 76 Year
  Sex: Male

DRUGS (1)
  1. PADCEV [Suspect]
     Active Substance: ENFORTUMAB VEDOTIN-EJFV
     Indication: Transitional cell carcinoma
     Dosage: 1.25 MG/KG, CYCLIC (DAY 1,8,15 EVERY 28 DAYS COMPLETED UNTIL C2D8).
     Route: 042
     Dates: start: 20220701, end: 20220812

REACTIONS (3)
  - Cardio-respiratory arrest [Fatal]
  - Malignant neoplasm progression [Fatal]
  - Respiratory tract infection [Fatal]

NARRATIVE: CASE EVENT DATE: 20220815
